FAERS Safety Report 4284931-1 (Version None)
Quarter: 2004Q1

REPORT INFORMATION
  Report Type: 
  Country: None (occurrence: None)
  Receive Date: 20040202
  Receipt Date: 20040122
  Transmission Date: 20041129
  Serious: Yes (Disabling, Other)
  Sender: FDA-Public Use
  Company Number: HQWYE489719FEB03

PATIENT
  Age: 43 Year
  Sex: Female

DRUGS (2)
  1. EFFEXOR XR [Suspect]
     Indication: DEPRESSION
     Dosage: 37.5 MG 1 X PER 1 DAY, ORAL
     Route: 048
     Dates: start: 20021001, end: 20021001
  2. EFFEXOR [Suspect]
     Dosage: ORAL
     Route: 048

REACTIONS (3)
  - INTENTIONAL SELF-INJURY [None]
  - SELF-INJURIOUS IDEATION [None]
  - SUICIDE ATTEMPT [None]
